FAERS Safety Report 15505780 (Version 2)
Quarter: 2018Q4

REPORT INFORMATION
  Report Type: Spontaneous
  Country: US (occurrence: US)
  Receive Date: 20181016
  Receipt Date: 20181025
  Transmission Date: 20190205
  Serious: No
  Sender: FDA-Public Use
  Company Number: US-BAYER-2018-192576

PATIENT
  Sex: Male

DRUGS (4)
  1. CLARITIN [Suspect]
     Active Substance: LORATADINE
     Indication: ALLERGIC RESPIRATORY SYMPTOM
     Dosage: 2 DF, UNK
     Route: 048
  2. CLARITIN [Interacting]
     Active Substance: LORATADINE
     Indication: NASOPHARYNGITIS
  3. FLONASE [Interacting]
     Active Substance: FLUTICASONE PROPIONATE
  4. ADVIL [Concomitant]
     Active Substance: IBUPROFEN

REACTIONS (7)
  - Product prescribing error [Unknown]
  - Therapeutic response shortened [Unknown]
  - Extra dose administered [Unknown]
  - Expired product administered [Unknown]
  - Feeling hot [Unknown]
  - Contraindicated product prescribed [None]
  - Labelled drug-drug interaction medication error [None]

NARRATIVE: CASE EVENT DATE: 20181014
